FAERS Safety Report 25024152 (Version 1)
Quarter: 2025Q1

REPORT INFORMATION
  Report Type: Spontaneous
  Country: US (occurrence: US)
  Receive Date: 20250228
  Receipt Date: 20250228
  Transmission Date: 20250408
  Serious: Yes (Other)
  Sender: BAUSCH AND LOMB
  Company Number: US-BAUSCH-BL-2025-002611

PATIENT
  Age: 73 Year
  Sex: Female

DRUGS (1)
  1. XIFAXAN [Suspect]
     Active Substance: RIFAXIMIN
     Indication: Bacterial infection
     Route: 048
     Dates: start: 20250212, end: 20250221

REACTIONS (8)
  - Brain neoplasm [Not Recovered/Not Resolved]
  - Ocular hyperaemia [Recovered/Resolved]
  - Myalgia [Recovered/Resolved]
  - Balance disorder [Recovered/Resolved]
  - Abdominal distension [Unknown]
  - Muscle spasms [Unknown]
  - Nausea [Unknown]
  - Hypersensitivity [Not Recovered/Not Resolved]

NARRATIVE: CASE EVENT DATE: 20250201
